FAERS Safety Report 21990134 (Version 3)
Quarter: 2023Q1

REPORT INFORMATION
  Report Type: Report from Study
  Country: US (occurrence: US)
  Receive Date: 20230214
  Receipt Date: 20230309
  Transmission Date: 20230418
  Serious: Yes (Hospitalization, Other)
  Sender: FDA-Public Use
  Company Number: US-MIRATI-MT2023PM03474

PATIENT

DRUGS (1)
  1. KRAZATI [Suspect]
     Active Substance: ADAGRASIB
     Indication: Lung neoplasm malignant
     Dosage: 600 MG, BID
     Route: 048
     Dates: start: 20230201

REACTIONS (8)
  - Hallucinations, mixed [Not Recovered/Not Resolved]
  - Disorientation [Unknown]
  - Brain oedema [Unknown]
  - Urinary tract infection [Unknown]
  - Lethargy [Unknown]
  - Gait disturbance [Unknown]
  - Diarrhoea [Not Recovered/Not Resolved]
  - Vomiting [Recovered/Resolved]

NARRATIVE: CASE EVENT DATE: 20230201
